FAERS Safety Report 5442405-6 (Version None)
Quarter: 2007Q3

REPORT INFORMATION
  Report Type: 
  Country: None (occurrence: None)
  Receive Date: 20070829
  Receipt Date: 20070816
  Transmission Date: 20080115
  Serious: Yes (Death)
  Sender: FDA-Public Use
  Company Number: 2006P1000149

PATIENT
  Age: 74 Year
  Sex: Male
  Weight: 70.4 kg

DRUGS (10)
  1. RETAVASE [Suspect]
     Indication: ACUTE MYOCARDIAL INFARCTION
     Dosage: 5 IU; BID; IV
     Route: 042
     Dates: start: 20041007, end: 20041007
  2. ABCIXIMAB [Suspect]
     Indication: ACUTE MYOCARDIAL INFARCTION
     Dosage: 9.6 MG; X1; IV, 208 MG; X1; IV
     Route: 042
     Dates: start: 20041007, end: 20041007
  3. ABCIXIMAB [Suspect]
     Indication: ACUTE MYOCARDIAL INFARCTION
     Dosage: 9.6 MG; X1; IV, 208 MG; X1; IV
     Route: 042
     Dates: start: 20041007, end: 20041007
  4. PLACEBO [Suspect]
     Indication: ACUTE MYOCARDIAL INFARCTION
     Dosage: 0.25 MG/KG; X1; IV
     Route: 042
     Dates: start: 20041007, end: 20041007
  5. DOBUTAMINE HCL [Concomitant]
  6. ROCEPHIN [Concomitant]
  7. LASIX [Concomitant]
  8. COREG [Concomitant]
  9. VASOTEC [Concomitant]
  10. SPIRONOLACTONE [Concomitant]

REACTIONS (17)
  - AGGRESSION [None]
  - AGITATION [None]
  - BLOOD GLUCOSE INCREASED [None]
  - BUNDLE BRANCH BLOCK LEFT [None]
  - CARDIAC FAILURE CONGESTIVE [None]
  - CONDITION AGGRAVATED [None]
  - DEHYDRATION [None]
  - FALL [None]
  - HAEMOGLOBIN DECREASED [None]
  - HYPOTENSION [None]
  - MENTAL STATUS CHANGES [None]
  - NEUTROPHIL PERCENTAGE INCREASED [None]
  - PULSE ABSENT [None]
  - RENAL FAILURE ACUTE [None]
  - RESPIRATORY ARREST [None]
  - URINARY TRACT INFECTION [None]
  - WHITE BLOOD CELL COUNT INCREASED [None]
